FAERS Safety Report 25557684 (Version 1)
Quarter: 2025Q3

REPORT INFORMATION
  Report Type: Spontaneous
  Country: US (occurrence: US)
  Receive Date: 20250715
  Receipt Date: 20250715
  Transmission Date: 20251021
  Serious: No
  Sender: NOVO NORDISK
  Company Number: US-NOVOPROD-1413538

PATIENT
  Age: 81 Year
  Sex: Female

DRUGS (1)
  1. OZEMPIC [Suspect]
     Active Substance: SEMAGLUTIDE
     Indication: Diabetes mellitus
     Dosage: 0.25 MG, QW
     Route: 058

REACTIONS (9)
  - Feeling abnormal [Unknown]
  - Adverse drug reaction [Unknown]
  - Joint injury [Unknown]
  - Disturbance in attention [Unknown]
  - Dehydration [Unknown]
  - Constipation [Unknown]
  - Dyspepsia [Unknown]
  - Product communication issue [Unknown]
  - Product dose omission issue [Unknown]

NARRATIVE: CASE EVENT DATE: 20241101
